FAERS Safety Report 5656275-4 (Version None)
Quarter: 2008Q1

REPORT INFORMATION
  Report Type: 
  Country: None (occurrence: None)
  Receive Date: 20080309
  Receipt Date: 20070808
  Transmission Date: 20080703
  Serious: No
  Sender: FDA-Public Use
  Company Number: US-BAYER-200711986BCC

PATIENT
  Age: 70 Year
  Sex: Female
  Weight: 54 kg

DRUGS (6)
  1. ALEVE [Suspect]
     Indication: ARTHRALGIA
     Dosage: TOTAL DAILY DOSE: 440 MG  UNIT DOSE: 220 MG
     Route: 048
     Dates: start: 20070618
  2. ULTRAM [Concomitant]
  3. SKELAXIN [Concomitant]
  4. LOTREL [Concomitant]
     Dates: start: 20050101
  5. ZETIA [Concomitant]
     Dates: start: 20050101
  6. EVISTA [Concomitant]
     Dates: start: 20050101

REACTIONS (2)
  - FEELING HOT [None]
  - FLUSHING [None]
